FAERS Safety Report 21756475 (Version 1)
Quarter: 2022Q4

REPORT INFORMATION
  Report Type: Spontaneous
  Country: JP (occurrence: None)
  Receive Date: 20221220
  Receipt Date: 20221220
  Transmission Date: 20230113
  Serious: Yes (Other)
  Sender: FDA-Public Use
  Company Number: 2022A402958

PATIENT
  Age: 42 Year
  Sex: Female

DRUGS (11)
  1. TAGRISSO [Suspect]
     Active Substance: OSIMERTINIB
     Indication: Non-small cell lung cancer
     Route: 048
     Dates: start: 20210729
  2. CLARITHROMYCIN [Concomitant]
     Active Substance: CLARITHROMYCIN
     Route: 048
  3. MIYA-BM [Concomitant]
     Active Substance: CLOSTRIDIUM BUTYRICUM SPORES STRAIN M-55
     Route: 048
  4. FEXOFENADINE HYDROCHLORIDE [Concomitant]
     Active Substance: FEXOFENADINE HYDROCHLORIDE
     Route: 048
  5. CODEINE PHOSPHATE [Concomitant]
     Active Substance: CODEINE PHOSPHATE
     Route: 065
  6. ITRACONAZOLE [Concomitant]
     Active Substance: ITRACONAZOLE
     Route: 048
  7. KETOCONAZOLE [Concomitant]
     Active Substance: KETOCONAZOLE
     Dosage: DOSE UNKNOWN
     Route: 062
  8. LULICONAZOLE [Concomitant]
     Active Substance: LULICONAZOLE
     Dosage: DOSE UNKNOWN
     Route: 062
  9. BETAMETHASONE DIPROPIONATE [Concomitant]
     Active Substance: BETAMETHASONE DIPROPIONATE
     Dosage: DOSE UNKNOWN
     Route: 065
  10. SILVER SULFADIAZINE [Concomitant]
     Active Substance: SILVER SULFADIAZINE
     Dosage: DOSE UNKNOWN
     Route: 062
  11. ZEBIAX [Concomitant]
     Dosage: DOSE UNKNOWN
     Route: 065

REACTIONS (6)
  - Carcinoembryonic antigen increased [Unknown]
  - Metastases to central nervous system [Unknown]
  - Metastases to thorax [Unknown]
  - Diarrhoea [Unknown]
  - Rash [Unknown]
  - Stomatitis [Unknown]

NARRATIVE: CASE EVENT DATE: 20220401
